FAERS Safety Report 9504048 (Version 2)
Quarter: 2013Q3

REPORT INFORMATION
  Report Type: Spontaneous
  Country: JP (occurrence: JP)
  Receive Date: 20130906
  Receipt Date: 20130924
  Transmission Date: 20140515
  Serious: Yes (Hospitalization)
  Sender: FDA-Public Use
  Company Number: JP-PFIZER INC-2013254946

PATIENT
  Age: 76 Year
  Sex: Female

DRUGS (2)
  1. ALPRAZOLAM [Suspect]
     Dosage: UNK
     Route: 048
  2. NITRAZEPAM [Suspect]
     Dosage: UNK
     Route: 048

REACTIONS (1)
  - Toxicity to various agents [Recovering/Resolving]
